FAERS Safety Report 18736116 (Version 1)
Quarter: 2021Q1

REPORT INFORMATION
  Report Type: Spontaneous
  Country: US (occurrence: US)
  Receive Date: 20210113
  Receipt Date: 20210113
  Transmission Date: 20210419
  Serious: No
  Sender: FDA-Public Use
  Company Number: US-ALKERMES INC.-ALK-2021-000051

PATIENT
  Age: 37 Year
  Sex: Male

DRUGS (2)
  1. VIVITROL [Suspect]
     Active Substance: NALTREXONE
     Indication: DEPENDENCE
     Dosage: 380 MILLIGRAM, QMO
     Route: 030
     Dates: start: 20210104
  2. VIVITROL [Suspect]
     Active Substance: NALTREXONE
     Dosage: 380 MILLIGRAM, QMO
     Route: 030

REACTIONS (7)
  - Injection site cellulitis [Not Recovered/Not Resolved]
  - Injection site rash [Not Recovered/Not Resolved]
  - Gait inability [Not Recovered/Not Resolved]
  - Inadequate aseptic technique in use of product [Recovered/Resolved]
  - Injection site infection [Not Recovered/Not Resolved]
  - Injection site nerve damage [Not Recovered/Not Resolved]
  - Injection site reaction [Not Recovered/Not Resolved]

NARRATIVE: CASE EVENT DATE: 20210104
